FAERS Safety Report 8076735-9 (Version None)
Quarter: 2012Q1

REPORT INFORMATION
  Report Type: 
  Country: None (occurrence: None)
  Receive Date: 20120127
  Receipt Date: 20120116
  Transmission Date: 20120608
  Serious: Yes (Other)
  Sender: FDA-Public Use
  Company Number: CHPA2012US001523

PATIENT
  Age: 65 Year
  Sex: Female

DRUGS (1)
  1. EXCEDRIN (MIGRAINE) [Suspect]
     Indication: HEADACHE
     Dosage: 2-4 DF, QD
     Route: 048
     Dates: start: 19780101

REACTIONS (4)
  - HEADACHE [None]
  - DIZZINESS [None]
  - LOSS OF CONSCIOUSNESS [None]
  - DRUG DEPENDENCE [None]
